FAERS Safety Report 8297402-2 (Version None)
Quarter: 2012Q2

REPORT INFORMATION
  Report Type: 
  Country: None (occurrence: None)
  Receive Date: 20120419
  Receipt Date: 20120409
  Transmission Date: 20120825
  Serious: Yes (Other)
  Sender: FDA-Public Use
  Company Number: US-JNJFOC-20120403810

PATIENT
  Sex: Female

DRUGS (10)
  1. REMICADE [Suspect]
     Route: 042
     Dates: start: 20120206
  2. SYNTHROID [Concomitant]
     Route: 065
  3. LOVASTATIN [Concomitant]
     Route: 065
  4. TRAMADOL [Concomitant]
     Route: 065
  5. SERTRALINE HYDROCHLORIDE [Concomitant]
     Route: 065
  6. REMICADE [Suspect]
     Indication: CROHN'S DISEASE
     Route: 042
  7. METFORMIN HCL [Concomitant]
     Route: 065
  8. GLIMEPIRIDE [Concomitant]
     Route: 065
  9. LISINOPRIL [Concomitant]
     Route: 065
  10. VYVANSE [Concomitant]
     Route: 065

REACTIONS (3)
  - DYSPNOEA [None]
  - ABDOMINAL DISTENSION [None]
  - INFUSION RELATED REACTION [None]
